FAERS Safety Report 9932566 (Version 1)
Quarter: 2014Q1

REPORT INFORMATION
  Report Type: Spontaneous
  Country: US (occurrence: None)
  Receive Date: 20140227
  Receipt Date: 20140227
  Transmission Date: 20141002
  Serious: Yes (Other)
  Sender: FDA-Public Use
  Company Number: None

PATIENT
  Sex: 0

DRUGS (1)
  1. ADVAIR DISKUS [Suspect]
     Dates: start: 20140118

REACTIONS (4)
  - Product taste abnormal [None]
  - Product colour issue [None]
  - Throat irritation [None]
  - Oral discomfort [None]
